FAERS Safety Report 4289762-4 (Version None)
Quarter: 2004Q1

REPORT INFORMATION
  Report Type: 
  Country: None (occurrence: None)
  Receive Date: 20040209
  Receipt Date: 20040129
  Transmission Date: 20041129
  Serious: Yes (Other)
  Sender: FDA-Public Use
  Company Number: 200410320GDDC

PATIENT
  Age: 11 Year
  Sex: Female
  Weight: 99.54 kg

DRUGS (1)
  1. DESMOPRESSIN (DDAVP) NASAL SPRAY [Suspect]
     Indication: ENURESIS
     Dosage: INH
     Route: 055

REACTIONS (6)
  - BENIGN INTRACRANIAL HYPERTENSION [None]
  - DIPLOPIA [None]
  - HEADACHE [None]
  - PAPILLOEDEMA [None]
  - STRABISMUS [None]
  - VISUAL FIELD DEFECT [None]
